FAERS Safety Report 19442716 (Version 1)
Quarter: 2021Q2

REPORT INFORMATION
  Report Type: Spontaneous
  Country: JP (occurrence: JP)
  Receive Date: 20210621
  Receipt Date: 20210621
  Transmission Date: 20210717
  Serious: Yes (Hospitalization)
  Sender: FDA-Public Use
  Company Number: JP-PFIZER INC-2021666836

PATIENT
  Age: 8 Decade
  Sex: Male

DRUGS (2)
  1. EPIRUBICIN HCL [Suspect]
     Active Substance: EPIRUBICIN HYDROCHLORIDE
     Dosage: 50 MG IN LIPIODOL 5ML
     Dates: start: 202010
  2. ATEZOLIZUMAB. [Interacting]
     Active Substance: ATEZOLIZUMAB

REACTIONS (2)
  - Drug interaction [Unknown]
  - Lung disorder [Recovering/Resolving]
